FAERS Safety Report 6425806-9 (Version None)
Quarter: 2009Q4

REPORT INFORMATION
  Report Type: 
  Country: None (occurrence: None)
  Receive Date: 20091103
  Receipt Date: 20090924
  Transmission Date: 20100525
  Serious: No
  Sender: FDA-Public Use
  Company Number: US-ABBOTT-09P-163-0591256-00

PATIENT
  Sex: Female
  Weight: 102.15 kg

DRUGS (1)
  1. BIAXIN [Suspect]
     Indication: BRONCHITIS
     Dosage: UNKNOWN DOSAGE
     Dates: start: 19900101

REACTIONS (3)
  - DIARRHOEA [None]
  - DIZZINESS [None]
  - DYSPNOEA [None]
